FAERS Safety Report 15214541 (Version 1)
Quarter: 2018Q3

REPORT INFORMATION
  Report Type: Spontaneous
  Country: US (occurrence: US)
  Receive Date: 20180730
  Receipt Date: 20180730
  Transmission Date: 20181010
  Serious: Yes (Other)
  Sender: FDA-Public Use
  Company Number: PHHY2018US052526

PATIENT
  Age: 34 Year
  Sex: Female

DRUGS (2)
  1. CEFTRIAXONE. [Suspect]
     Active Substance: CEFTRIAXONE
     Indication: AMNIOTIC CAVITY INFECTION
  2. CEFTRIAXONE. [Suspect]
     Active Substance: CEFTRIAXONE
     Indication: LISTERIOSIS
     Dosage: UNK
     Route: 042

REACTIONS (2)
  - Maternal exposure during pregnancy [Unknown]
  - Premature delivery [Unknown]
